FAERS Safety Report 7762836 (Version 5)
Quarter: 2013Q1

REPORT INFORMATION
  Report Type: Report from Study
  Country: FR (occurrence: FR)
  Receive Date: 20110117
  Receipt Date: 20130308
  Transmission Date: 20140127
  Serious: Yes (Death, Hospitalization, Other)
  Sender: FDA-Public Use
  Company Number: PHHO2011FR00592

PATIENT
  Sex: 0

DRUGS (1)
  1. EVEROLIMUS [Suspect]
     Indication: HEPATIC CANCER
     Dosage: CODE NOT BROKEN
     Route: 048
     Dates: start: 20101130, end: 20110105

REACTIONS (5)
  - Thrombocytopenia [Fatal]
  - Anaemia [Recovered/Resolved]
  - Epistaxis [Recovered/Resolved]
  - Hepatic cirrhosis [Fatal]
  - Concomitant disease progression [Unknown]
